FAERS Safety Report 5838043-3 (Version None)
Quarter: 2008Q3

REPORT INFORMATION
  Report Type: 
  Country: None (occurrence: None)
  Receive Date: 20080808
  Receipt Date: 20080324
  Transmission Date: 20090109
  Serious: No
  Sender: FDA-Public Use
  Company Number: A0718971A

PATIENT
  Age: 53 Year
  Sex: Female

DRUGS (2)
  1. PAXIL [Suspect]
     Indication: ANXIETY
     Route: 048
  2. UNKNOWN [Concomitant]

REACTIONS (10)
  - ADVERSE EVENT [None]
  - FEELING HOT [None]
  - FLUSHING [None]
  - HYPERHIDROSIS [None]
  - INSOMNIA [None]
  - NASOPHARYNGITIS [None]
  - STOMACH DISCOMFORT [None]
  - TINNITUS [None]
  - WEIGHT INCREASED [None]
  - WITHDRAWAL SYNDROME [None]
